FAERS Safety Report 7189924-2 (Version None)
Quarter: 2010Q4

REPORT INFORMATION
  Report Type: 
  Country: None (occurrence: None)
  Receive Date: 20101123
  Receipt Date: 20100813
  Transmission Date: 20110411
  Serious: No
  Sender: FDA-Public Use
  Company Number: 017207

PATIENT
  Sex: Male
  Weight: 113.4 kg

DRUGS (1)
  1. CIMZIA [Suspect]
     Indication: CROHN'S DISEASE
     Dosage: 2 SYRINGES ONCE A MONTH SUBCUTANEOUS
     Route: 058
     Dates: start: 20100401, end: 20100625

REACTIONS (1)
  - MALAISE [None]
